FAERS Safety Report 8251516-1 (Version None)
Quarter: 2012Q1

REPORT INFORMATION
  Report Type: 
  Country: None (occurrence: None)
  Receive Date: 20120322
  Receipt Date: 20120215
  Transmission Date: 20120608
  Serious: Yes (Hospitalization)
  Sender: FDA-Public Use
  Company Number: UTC-015638

PATIENT
  Age: 40 Year
  Sex: Female
  Weight: 163.6 kg

DRUGS (3)
  1. TRACLEER [Concomitant]
  2. TYVASO [Suspect]
     Indication: PULMONARY ARTERIAL HYPERTENSION
     Dosage: 18-54 MICGROGRAMS, INHALATION
     Route: 055
     Dates: start: 20111206
  3. COUMADIN [Concomitant]

REACTIONS (1)
  - SYNCOPE [None]
